FAERS Safety Report 25739811 (Version 1)
Quarter: 2025Q3

REPORT INFORMATION
  Report Type: Spontaneous
  Country: US (occurrence: None)
  Receive Date: 20250828
  Receipt Date: 20250828
  Transmission Date: 20251021
  Serious: Yes (Hospitalization)
  Sender: FDA-CTU
  Company Number: None

PATIENT
  Age: 73 Year
  Sex: Male

DRUGS (11)
  1. LENALIDOMIDE [Suspect]
     Active Substance: LENALIDOMIDE
     Indication: Plasmacytoma
     Route: 048
  2. MODERNA INJ [Concomitant]
  3. ASPIRIN [Concomitant]
     Active Substance: ASPIRIN
  4. BENADRYL [Concomitant]
     Active Substance: DIPHENHYDRAMINE HYDROCHLORIDE
  5. CETIRIZINE HCL [Concomitant]
     Active Substance: CETIRIZINE HYDROCHLORIDE
  6. COENZYME Q10 [Concomitant]
     Active Substance: DIETARY SUPPLEMENT\UBIDECARENONE
  7. CYMBALTA [Concomitant]
     Active Substance: DULOXETINE HYDROCHLORIDE
  8. DARZALEX [Concomitant]
     Active Substance: DARATUMUMAB
  9. FOLIC ACID [Concomitant]
     Active Substance: FOLIC ACID
  10. GABAPENTIN [Concomitant]
     Active Substance: GABAPENTIN
  11. HYDROCORT POW [Concomitant]

REACTIONS (3)
  - Loss of consciousness [None]
  - Blood pressure decreased [None]
  - Hiatus hernia [None]

NARRATIVE: CASE EVENT DATE: 20250825
